FAERS Safety Report 7138344-5 (Version None)
Quarter: 2010Q4

REPORT INFORMATION
  Report Type: 
  Country: None (occurrence: None)
  Receive Date: 20101206
  Receipt Date: 20101124
  Transmission Date: 20110411
  Serious: Yes (Death)
  Sender: FDA-Public Use
  Company Number: GXKR2010US13305

PATIENT
  Age: 45 Year
  Sex: Male

DRUGS (7)
  1. VALPROIC ACID (NGX) [Suspect]
     Indication: CONVULSION
     Route: 065
  2. TACROLIMUS [Concomitant]
  3. ANTI-THYMOCYTE GLOBULIN NOS [Concomitant]
     Indication: EPILEPSY
  4. PREDNISONE [Concomitant]
  5. MYCOPHENOLATE MOFETIL [Concomitant]
  6. ANTIBIOTICS [Concomitant]
  7. ANTIFUNGALS [Concomitant]

REACTIONS (5)
  - AMINO ACID METABOLISM DISORDER [None]
  - BRAIN HERNIATION [None]
  - BRAIN OEDEMA [None]
  - HYPERAMMONAEMIA [None]
  - MEDICAL DIET [None]
